FAERS Safety Report 11186217 (Version 2)
Quarter: 2015Q2

REPORT INFORMATION
  Report Type: Spontaneous
  Country: PT (occurrence: PT)
  Receive Date: 20150612
  Receipt Date: 20150619
  Transmission Date: 20150821
  Serious: Yes (Other)
  Sender: FDA-Public Use
  Company Number: PHHY2015PT070441

PATIENT
  Age: 75 Year
  Sex: Male

DRUGS (1)
  1. IMATINIB [Suspect]
     Active Substance: IMATINIB
     Indication: CHRONIC MYELOID LEUKAEMIA
     Dosage: 400 MG, UNK
     Route: 065
     Dates: start: 2006

REACTIONS (5)
  - Non-Hodgkin^s lymphoma [Unknown]
  - Second primary malignancy [Unknown]
  - Asthenia [Unknown]
  - Back pain [Unknown]
  - Metastases to lymph nodes [Unknown]
